FAERS Safety Report 6667837-X (Version None)
Quarter: 2010Q2

REPORT INFORMATION
  Report Type: 
  Country: None (occurrence: None)
  Receive Date: 20100405
  Receipt Date: 20100324
  Transmission Date: 20101027
  Serious: Yes (Other)
  Sender: FDA-Public Use
  Company Number: US-PFIZER INC-2010038560

PATIENT
  Sex: Male
  Weight: 92.063 kg

DRUGS (3)
  1. GEODON [Suspect]
     Dosage: 60 MG, 1X/DAY
     Route: 048
     Dates: start: 20090501
  2. OLANZAPINE [Concomitant]
     Indication: DEPRESSION
     Dosage: UNK
  3. CITALOPRAM [Concomitant]
     Indication: DEPRESSION
     Dosage: 40 MG, 1X/DAY

REACTIONS (1)
  - DRUG DEPENDENCE [None]
